FAERS Safety Report 16847320 (Version 3)
Quarter: 2020Q2

REPORT INFORMATION
  Report Type: Report from Study
  Country: US (occurrence: US)
  Receive Date: 20190924
  Receipt Date: 20200512
  Transmission Date: 20200713
  Serious: Yes (Hospitalization)
  Sender: FDA-Public Use
  Company Number: US-ACTELION-A-NJ2019-195908

PATIENT
  Age: 75 Year
  Sex: Female

DRUGS (30)
  1. LEXAPRO [Concomitant]
     Active Substance: ESCITALOPRAM OXALATE
  2. NIFEDIPINE. [Concomitant]
     Active Substance: NIFEDIPINE
  3. MIRTAZAPINE. [Concomitant]
     Active Substance: MIRTAZAPINE
  4. PROPOXYPHENE AND ACETAMINOPHEN [Concomitant]
     Active Substance: ACETAMINOPHEN\PROPOXYPHENE NAPSYLATE
  5. TRAMADOL. [Concomitant]
     Active Substance: TRAMADOL
  6. WARFARIN [Concomitant]
     Active Substance: WARFARIN
  7. OPSUMIT [Suspect]
     Active Substance: MACITENTAN
     Indication: PULMONARY HYPERTENSION
     Dosage: 10 MG, QD
     Route: 048
     Dates: start: 20181009
  8. BACLOFEN. [Concomitant]
     Active Substance: BACLOFEN
  9. METHOTREXATE. [Concomitant]
     Active Substance: METHOTREXATE
  10. TRIAMCINOLONE [Concomitant]
     Active Substance: TRIAMCINOLONE
  11. XELJANZ [Suspect]
     Active Substance: TOFACITINIB CITRATE
     Indication: ARTHRITIS
     Dosage: 5 MG, BID
     Route: 048
     Dates: start: 20181127
  12. FOLIC ACID. [Concomitant]
     Active Substance: FOLIC ACID
  13. HYDROCODONE BITARTRATE AND ACETAMINOPHEN [Concomitant]
     Active Substance: ACETAMINOPHEN\HYDROCODONE BITARTRATE
  14. KETOROLAC [Concomitant]
     Active Substance: KETOROLAC TROMETHAMINE
  15. AMLODIPINE [Concomitant]
     Active Substance: AMLODIPINE BESYLATE
  16. CEPHALEXIN. [Concomitant]
     Active Substance: CEPHALEXIN
  17. KRISTALOSE [Concomitant]
     Active Substance: LACTULOSE
  18. METOCLOPRAM [Concomitant]
     Active Substance: METOCLOPRAMIDE
  19. TORSEMIDE. [Concomitant]
     Active Substance: TORSEMIDE
  20. VENLAFAXINE [Concomitant]
     Active Substance: VENLAFAXINE HYDROCHLORIDE
  21. AMITIZA [Concomitant]
     Active Substance: LUBIPROSTONE
  22. CLOBETASOL [Concomitant]
     Active Substance: CLOBETASOL
  23. FEXOFENADINE [Concomitant]
     Active Substance: FEXOFENADINE HYDROCHLORIDE
  24. OMEPRAZOLE. [Concomitant]
     Active Substance: OMEPRAZOLE
  25. PANTOPRAZOLE [Concomitant]
     Active Substance: PANTOPRAZOLE
  26. VITAMIN D [Concomitant]
     Active Substance: VITAMIN D NOS
  27. CLOPIDOGREL [Concomitant]
     Active Substance: CLOPIDOGREL BISULFATE
  28. METOPROLOL. [Concomitant]
     Active Substance: METOPROLOL
  29. ROSUVASTATIN. [Concomitant]
     Active Substance: ROSUVASTATIN
  30. TRAZODONE [Concomitant]
     Active Substance: TRAZODONE HYDROCHLORIDE

REACTIONS (6)
  - Product dose omission [Unknown]
  - Dyspnoea [Not Recovered/Not Resolved]
  - Hospitalisation [Unknown]
  - Fall [Unknown]
  - Rib fracture [Unknown]
  - Pulmonary oedema [Unknown]

NARRATIVE: CASE EVENT DATE: 20200428
